FAERS Safety Report 7284124-X (Version None)
Quarter: 2011Q1

REPORT INFORMATION
  Report Type: 
  Country: None (occurrence: None)
  Receive Date: 20110209
  Receipt Date: 20110131
  Transmission Date: 20110831
  Serious: Yes (Hospitalization, Disabling, Other)
  Sender: FDA-Public Use
  Company Number: PHHY2010FR59902

PATIENT
  Age: 43 Year
  Sex: Male

DRUGS (4)
  1. EXTAVIA [Suspect]
     Indication: MULTIPLE SCLEROSIS
     Dosage: 1 ML, UNK
     Route: 058
     Dates: start: 20100101
  2. DAFALGAN [Concomitant]
     Dosage: 2 DF, TID
  3. OSMOGEL [Concomitant]
     Dosage: UNK
  4. ADVIL [Concomitant]
     Dosage: UNK

REACTIONS (13)
  - VOMITING [None]
  - INJECTION SITE CELLULITIS [None]
  - GASTROINTESTINAL DISORDER [None]
  - RASH [None]
  - PYREXIA [None]
  - GAIT DISTURBANCE [None]
  - INJECTION SITE ERYTHEMA [None]
  - INJECTION SITE PAIN [None]
  - PAIN [None]
  - ESCHERICHIA SEPSIS [None]
  - ARTHRALGIA [None]
  - INJECTION SITE SWELLING [None]
  - INJECTION SITE INDURATION [None]
